FAERS Safety Report 12118442 (Version 2)
Quarter: 2016Q1

REPORT INFORMATION
  Report Type: Spontaneous
  Country: FR (occurrence: FR)
  Receive Date: 20160226
  Receipt Date: 20160226
  Transmission Date: 20160526
  Serious: Yes (Death)
  Sender: FDA-Public Use
  Company Number: PHHY2016FR024757

PATIENT
  Age: 85 Year
  Sex: Male

DRUGS (8)
  1. EXELON PATCH [Suspect]
     Active Substance: RIVASTIGMINE
     Indication: DEMENTIA
     Dosage: 4.6 MG, QD
     Route: 062
     Dates: start: 20130101, end: 20160130
  2. MODOPAR [Suspect]
     Active Substance: BENSERAZIDE HYDROCHLORIDE\LEVODOPA
     Dosage: MODOPAR POSOLOGY WAS DECREASED
     Route: 048
  3. PREVISCAN [Concomitant]
     Active Substance: FLUINDIONE
     Indication: PRODUCT USED FOR UNKNOWN INDICATION
     Dosage: UNK
     Route: 065
     Dates: end: 20151231
  4. CLOZAPINE. [Suspect]
     Active Substance: CLOZAPINE
     Dosage: 2 DF, QD
     Route: 048
     Dates: start: 20151221, end: 20160130
  5. SERTRALINE [Suspect]
     Active Substance: SERTRALINE HYDROCHLORIDE
     Indication: ANXIETY DISORDER
     Dosage: 1 DF, QD
     Route: 048
     Dates: start: 201504, end: 20160130
  6. ALPRAZOLAM. [Concomitant]
     Active Substance: ALPRAZOLAM
     Indication: PRODUCT USED FOR UNKNOWN INDICATION
     Dosage: 0.25 MG, UNK
     Route: 065
     Dates: end: 20160107
  7. CLOZAPINE. [Suspect]
     Active Substance: CLOZAPINE
     Indication: AGITATION
     Dosage: 1 DF, ON EVENING
     Route: 048
     Dates: start: 20151214, end: 20151221
  8. MODOPAR [Suspect]
     Active Substance: BENSERAZIDE HYDROCHLORIDE\LEVODOPA
     Indication: PARKINSON^S DISEASE
     Dosage: 625 MG, QD
     Route: 048
     Dates: end: 20160130

REACTIONS (1)
  - Sudden death [Fatal]

NARRATIVE: CASE EVENT DATE: 20160130
